FAERS Safety Report 11854127 (Version 1)
Quarter: 2015Q4

REPORT INFORMATION
  Report Type: Spontaneous
  Country: FR (occurrence: FR)
  Receive Date: 20151220
  Receipt Date: 20151220
  Transmission Date: 20160305
  Serious: Yes (Hospitalization, Other)
  Sender: FDA-Public Use
  Company Number: FR-BRISTOL-MYERS SQUIBB COMPANY-10721025

PATIENT
  Age: 36 Year
  Sex: Female
  Weight: 59 kg

DRUGS (4)
  1. SUSTIVA [Suspect]
     Active Substance: EFAVIRENZ
     Indication: HIV TEST POSITIVE
     Dosage: 600 MG, QD
     Route: 065
     Dates: start: 200005, end: 200102
  2. VIDEX [Suspect]
     Active Substance: DIDANOSINE
     Indication: HIV TEST POSITIVE
     Dosage: 400 MG, QD
     Route: 065
     Dates: start: 200005, end: 200102
  3. ZERIT [Suspect]
     Active Substance: STAVUDINE
     Indication: HIV TEST POSITIVE
     Dosage: 40 MG, BID
     Route: 048
     Dates: start: 200005, end: 200102
  4. AZTREONAM. [Concomitant]
     Active Substance: AZTREONAM
     Indication: PRODUCT USED FOR UNKNOWN INDICATION
     Dosage: UNK
     Route: 042
     Dates: start: 20010207, end: 20010207

REACTIONS (11)
  - Uterine contractions abnormal [Unknown]
  - Pancreatitis acute [Unknown]
  - Pregnancy [Recovered/Resolved]
  - Hepatic steatosis [Unknown]
  - Caesarean section [Unknown]
  - Influenza like illness [Unknown]
  - Abdominal pain [Unknown]
  - Abscess [Unknown]
  - Infection [Unknown]
  - Premature delivery [Unknown]
  - Lactic acidosis [Recovered/Resolved with Sequelae]

NARRATIVE: CASE EVENT DATE: 200010
